FAERS Safety Report 5094263-X (Version None)
Quarter: 2006Q3

REPORT INFORMATION
  Report Type: 
  Country: None (occurrence: None)
  Receive Date: 20060831
  Receipt Date: 20060809
  Transmission Date: 20061208
  Serious: Yes (Hospitalization, Other)
  Sender: FDA-Public Use
  Company Number: GB-GLAXOSMITHKLINE-B0433651A

PATIENT
  Age: 72 Year

DRUGS (3)
  1. ACYCLOVIR [Suspect]
     Dosage: 800MG FIVE TIMES PER DAY
     Route: 048
     Dates: start: 20060712, end: 20060718
  2. CO-AMOXICLAV [Suspect]
     Route: 048
     Dates: start: 20060712, end: 20060718
  3. WARFARIN SODIUM [Concomitant]

REACTIONS (2)
  - HAEMATOMA [None]
  - INTERNATIONAL NORMALISED RATIO INCREASED [None]
